FAERS Safety Report 23815828 (Version 3)
Quarter: 2024Q2

REPORT INFORMATION
  Report Type: Spontaneous
  Country: FR (occurrence: FR)
  Receive Date: 20240503
  Receipt Date: 20240514
  Transmission Date: 20240716
  Serious: Yes (Other)
  Sender: FDA-Public Use
  Company Number: FR-BIOVITRUM-2024-FR-005843

PATIENT
  Age: 65 Year
  Sex: Female
  Weight: 77 kg

DRUGS (6)
  1. KINERET [Suspect]
     Active Substance: ANAKINRA
     Indication: Pericarditis
  2. KINERET [Suspect]
     Active Substance: ANAKINRA
     Dosage: ONE INJECTION PER DAY FOR THE FIRST WEEK
  3. KINERET [Suspect]
     Active Substance: ANAKINRA
     Dosage: ONE INJECTION PER DAY, OUT OF 2 FOR THE SECOND WEEK
  4. KINERET [Suspect]
     Active Substance: ANAKINRA
     Dosage: EVERY OTHER DAY INJECTION FOR A WEEK
  5. KINERET [Suspect]
     Active Substance: ANAKINRA
     Dosage: 100 MG 1 DAY IN 2
  6. COLCHICINE [Concomitant]
     Active Substance: COLCHICINE
     Indication: Product used for unknown indication
     Dosage: HALF A TABLET MORNING AND EVENING
     Route: 048
     Dates: start: 20231221

REACTIONS (8)
  - Ill-defined disorder [Unknown]
  - Injection site pruritus [Not Recovered/Not Resolved]
  - Injection site haemorrhage [Not Recovered/Not Resolved]
  - Off label use [Not Recovered/Not Resolved]
  - Injection site erythema [Not Recovered/Not Resolved]
  - Injection site swelling [Not Recovered/Not Resolved]
  - Pulmonary pain [Unknown]
  - Injection site pain [Not Recovered/Not Resolved]

NARRATIVE: CASE EVENT DATE: 20240303
